FAERS Safety Report 11226018 (Version 1)
Quarter: 2015Q2

REPORT INFORMATION
  Report Type: Spontaneous
  Country: JP (occurrence: JP)
  Receive Date: 20150629
  Receipt Date: 20150629
  Transmission Date: 20150821
  Serious: Yes (Hospitalization)
  Sender: FDA-Public Use
  Company Number: JP-BAYER-2015-358598

PATIENT
  Age: 86 Year
  Sex: Female

DRUGS (1)
  1. BAYASPIRIN [Suspect]
     Active Substance: ASPIRIN
     Route: 048

REACTIONS (6)
  - Vomiting [None]
  - Abdominal distension [None]
  - Abdominal pain [None]
  - Abdominal pain upper [None]
  - Obstruction gastric [None]
  - Gastric cancer [None]
